FAERS Safety Report 9747767 (Version 1)
Quarter: 2013Q4

REPORT INFORMATION
  Report Type: Spontaneous
  Country: US (occurrence: None)
  Receive Date: 20131211
  Receipt Date: 20131211
  Transmission Date: 20140711
  Serious: Yes (Life-Threatening, Hospitalization)
  Sender: FDA-Public Use
  Company Number: None

PATIENT
  Age: 66 Year
  Sex: Female
  Weight: 71.67 kg

DRUGS (2)
  1. CHLORHEXIDINE GLUCONATE/ISOP AC, 2% W/V/26 ML APPLICATOR, CAREFUSION IN LEEWORD, KS 66211 [Suspect]
     Indication: PROPHYLAXIS
     Dosage: APPLIED TO A SURFACE, USUALLY THE SKIN
     Route: 062
     Dates: start: 20131024, end: 20131105
  2. CHLORHEXIDINE GLUCONATE/ISOP AC, 2% W/V/26 ML APPLICATOR, CAREFUSION IN LEEWORD, KS 66211 [Suspect]
     Indication: POSTOPERATIVE CARE
     Dosage: APPLIED TO A SURFACE, USUALLY THE SKIN
     Route: 062
     Dates: start: 20131024, end: 20131105

REACTIONS (9)
  - Burning sensation [None]
  - Dysgeusia [None]
  - Oral discomfort [None]
  - Lung disorder [None]
  - Choking [None]
  - Swelling [None]
  - Screaming [None]
  - Product label issue [None]
  - Unwanted awareness during anaesthesia [None]
